FAERS Safety Report 7048316-7 (Version None)
Quarter: 2010Q4

REPORT INFORMATION
  Report Type: 
  Country: None (occurrence: None)
  Receive Date: 20101015
  Receipt Date: 20101007
  Transmission Date: 20110411
  Serious: Yes (Hospitalization)
  Sender: FDA-Public Use
  Company Number: US-US-EMD SERONO, INC.-7021271

PATIENT
  Sex: Female

DRUGS (2)
  1. REBIF [Suspect]
     Indication: MULTIPLE SCLEROSIS
     Route: 058
     Dates: start: 20100301, end: 20100101
  2. REBIF [Suspect]
     Route: 058
     Dates: start: 20100101

REACTIONS (6)
  - BLOOD POTASSIUM DECREASED [None]
  - DRUG ADMINISTRATION ERROR [None]
  - DYSPNOEA [None]
  - MULTIPLE SCLEROSIS RELAPSE [None]
  - PAIN [None]
  - STRESS [None]
